FAERS Safety Report 24318354 (Version 2)
Quarter: 2024Q4

REPORT INFORMATION
  Report Type: Spontaneous
  Country: BR (occurrence: BR)
  Receive Date: 20240913
  Receipt Date: 20241008
  Transmission Date: 20250114
  Serious: Yes (Other)
  Sender: JOHNSON AND JOHNSON
  Company Number: BR-JNJFOC-20240915115

PATIENT
  Age: 58 Year
  Sex: Male

DRUGS (1)
  1. TECVAYLI [Suspect]
     Active Substance: TECLISTAMAB-CQYV
     Indication: Plasma cell myeloma
     Route: 065
     Dates: start: 202401

REACTIONS (4)
  - Hyperviscosity syndrome [Unknown]
  - Thrombocytopenia [Unknown]
  - Drug ineffective [Unknown]
  - Anaemia [Unknown]
